FAERS Safety Report 10484835 (Version 1)
Quarter: 2014Q3

REPORT INFORMATION
  Report Type: Report from Study
  Country: US (occurrence: US)
  Receive Date: 20140930
  Receipt Date: 20140930
  Transmission Date: 20150326
  Serious: Yes (Hospitalization)
  Sender: FDA-Public Use
  Company Number: PHHO2014US012976

PATIENT
  Age: 52 Year
  Sex: Male
  Weight: 82.7 kg

DRUGS (1)
  1. SOM230 [Suspect]
     Active Substance: PASIREOTIDE
     Indication: GASTROINTESTINAL CARCINOMA
     Dosage: UNK
     Route: 030
     Dates: start: 20120328, end: 20120425

REACTIONS (1)
  - Blood bilirubin increased [Unknown]

NARRATIVE: CASE EVENT DATE: 20120817
